FAERS Safety Report 21435413 (Version 7)
Quarter: 2023Q2

REPORT INFORMATION
  Report Type: Spontaneous
  Country: US (occurrence: US)
  Receive Date: 20221010
  Receipt Date: 20230621
  Transmission Date: 20230722
  Serious: No
  Sender: FDA-Public Use
  Company Number: US-IDORSIA-001441-2022-US

PATIENT
  Age: 70 Year
  Sex: Female

DRUGS (16)
  1. QUVIVIQ [Suspect]
     Active Substance: DARIDOREXANT
     Indication: Insomnia
     Dosage: 50 MG, QD
     Route: 048
     Dates: start: 20220922, end: 20220926
  2. QUVIVIQ [Suspect]
     Active Substance: DARIDOREXANT
     Dosage: 25MG, HALF TABLET OF 50MG
     Route: 048
     Dates: start: 20220921, end: 20220921
  3. QUVIVIQ [Suspect]
     Active Substance: DARIDOREXANT
     Dosage: 50 MG, QD
     Route: 048
  4. QUVIVIQ [Suspect]
     Active Substance: DARIDOREXANT
     Dosage: 25 MG (HALF OF 50MG), QD
     Route: 048
     Dates: end: 202306
  5. GABAPENTIN [Concomitant]
     Active Substance: GABAPENTIN
  6. ROPINIROLE [Concomitant]
     Active Substance: ROPINIROLE
     Dosage: 4 MG, QD
  7. AMANTADINE [Concomitant]
     Active Substance: AMANTADINE
     Dosage: 137 MG
  8. RYTARY [Concomitant]
     Active Substance: CARBIDOPA\LEVODOPA
  9. IRON [Concomitant]
     Active Substance: IRON
  10. CALCIUM [Concomitant]
     Active Substance: CALCIUM
  11. MAGNESIUM [Concomitant]
     Active Substance: MAGNESIUM
  12. ZINC [Concomitant]
     Active Substance: ZINC
  13. VITAMIN D3 [Concomitant]
     Active Substance: CHOLECALCIFEROL
  14. VITAMIN B COMPLEX [Concomitant]
     Active Substance: CYANOCOBALAMIN\DEXPANTHENOL\NIACINAMIDE\PYRIDOXINE HYDROCHLORIDE\RIBOFLAVIN 5^-PHOSPHATE SODIUM\THIA
  15. FLUDROCORTISONE [Concomitant]
     Active Substance: FLUDROCORTISONE
  16. MIDODRINE HYDROCHLORIDE [Concomitant]
     Active Substance: MIDODRINE HYDROCHLORIDE

REACTIONS (8)
  - Somnolence [Recovering/Resolving]
  - Fatigue [Recovering/Resolving]
  - Drug ineffective [Recovered/Resolved]
  - Middle insomnia [Not Recovered/Not Resolved]
  - Wrong technique in product usage process [Recovered/Resolved]
  - Product packaging difficult to open [Unknown]
  - Product availability issue [Recovered/Resolved]
  - Insomnia [Recovered/Resolved]

NARRATIVE: CASE EVENT DATE: 20230409
